FAERS Safety Report 17395163 (Version 3)
Quarter: 2020Q1

REPORT INFORMATION
  Report Type: Report from Study
  Country: DE (occurrence: DE)
  Receive Date: 20200210
  Receipt Date: 20200310
  Transmission Date: 20200409
  Serious: Yes (Hospitalization)
  Sender: FDA-Public Use
  Company Number: DE-ROCHE-2536552

PATIENT
  Age: 83 Year
  Sex: Male
  Weight: 63 kg

DRUGS (4)
  1. VEMURAFENIB. [Suspect]
     Active Substance: VEMURAFENIB
     Indication: MALIGNANT MELANOMA
     Dosage: ON 24/JAN/2020, HE RECEIVED MOST RECENT DOSE
     Route: 048
     Dates: start: 20200114
  2. COBIMETINIB. [Suspect]
     Active Substance: COBIMETINIB
     Indication: MALIGNANT MELANOMA
     Dosage: ON 24/JAN/2020, HE RECEIVED MOST RECENT DOSE
     Route: 048
     Dates: start: 20200114
  3. TELMISARTAN. [Concomitant]
     Active Substance: TELMISARTAN
     Indication: HYPERTENSION
     Dosage: DATE OF LAST ADMINISTRATION: 24/JAN/2020
     Route: 048
     Dates: start: 201001
  4. SIMVASTATIN. [Concomitant]
     Active Substance: SIMVASTATIN
     Dosage: DATE OF LAST ADMINISTRATION: 24/JAN/2020
     Route: 048
     Dates: start: 201103

REACTIONS (2)
  - Blood creatine phosphokinase increased [Recovered/Resolved]
  - Renal failure [Recovered/Resolved]

NARRATIVE: CASE EVENT DATE: 20200124
